FAERS Safety Report 8420994 (Version 2)
Quarter: 2013Q4

REPORT INFORMATION
  Report Type: Spontaneous
  Country: US (occurrence: US)
  Receive Date: 20120222
  Receipt Date: 20131119
  Transmission Date: 20140711
  Serious: Yes (Hospitalization, Other)
  Sender: FDA-Public Use
  Company Number: US-ROCHE-783988

PATIENT
  Age: 22 Year
  Sex: Female
  Weight: 59.02 kg

DRUGS (4)
  1. ACCUTANE [Suspect]
     Indication: ACNE
     Route: 048
  2. ACCUTANE [Suspect]
     Route: 048
  3. ACCUTANE [Suspect]
     Route: 048
  4. ACCUTANE [Suspect]
     Route: 048

REACTIONS (6)
  - Small intestinal obstruction [Unknown]
  - Colitis ulcerative [Unknown]
  - Crohn^s disease [Unknown]
  - Female genital tract fistula [Unknown]
  - Inflammatory bowel disease [Unknown]
  - Depression [Unknown]
